FAERS Safety Report 11693630 (Version 4)
Quarter: 2016Q1

REPORT INFORMATION
  Report Type: Spontaneous
  Country: US (occurrence: US)
  Receive Date: 20151103
  Receipt Date: 20160311
  Transmission Date: 20160525
  Serious: Yes (Death, Hospitalization, Other)
  Sender: FDA-Public Use
  Company Number: US-PFIZER INC-2015369051

PATIENT
  Age: 65 Year
  Sex: Male
  Weight: 83 kg

DRUGS (7)
  1. PLAVIX [Interacting]
     Active Substance: CLOPIDOGREL BISULFATE
     Indication: CARDIAC DISORDER
     Dosage: 1 DF, DAILY
     Route: 048
     Dates: start: 2004, end: 201508
  2. PLAVIX [Interacting]
     Active Substance: CLOPIDOGREL BISULFATE
     Indication: CORONARY ARTERY DISEASE
  3. OXYGEN. [Concomitant]
     Active Substance: OXYGEN
     Dosage: 5 L, UNK
  4. VFEND [Suspect]
     Active Substance: VORICONAZOLE
     Indication: LUNG INFECTION
     Dosage: UNK
     Dates: start: 20150728, end: 201508
  5. VFEND [Interacting]
     Active Substance: VORICONAZOLE
     Indication: ASPERGILLUS INFECTION
  6. OXYGEN. [Concomitant]
     Active Substance: OXYGEN
     Dosage: UNK (UP TO AROUND 8 L)
  7. OXYGEN. [Concomitant]
     Active Substance: OXYGEN
     Dosage: UNK (3 TO 4 LITERS)
     Dates: start: 2014

REACTIONS (12)
  - Joint swelling [Unknown]
  - Drug interaction [Recovered/Resolved]
  - Respiratory failure [Fatal]
  - Hallucination [Recovered/Resolved]
  - Aspergillus infection [Fatal]
  - Diarrhoea [Unknown]
  - Chronic obstructive pulmonary disease [Fatal]
  - Vision blurred [Unknown]
  - Nausea [Unknown]
  - Peripheral swelling [Unknown]
  - Pulmonary fibrosis [Fatal]
  - Condition aggravated [Fatal]

NARRATIVE: CASE EVENT DATE: 20150801
